FAERS Safety Report 7135284-2 (Version None)
Quarter: 2010Q4

REPORT INFORMATION
  Report Type: 
  Country: None (occurrence: None)
  Receive Date: 20101203
  Receipt Date: 20101201
  Transmission Date: 20110411
  Serious: Yes (Hospitalization)
  Sender: FDA-Public Use
  Company Number: A0897220A

PATIENT
  Sex: Female

DRUGS (1)
  1. SORIATANE [Suspect]
     Route: 048

REACTIONS (1)
  - HAEMORRHAGE [None]
